FAERS Safety Report 4366396-4 (Version None)
Quarter: 2004Q2

REPORT INFORMATION
  Report Type: 
  Country: None (occurrence: None)
  Receive Date: 20040527
  Receipt Date: 20040303
  Transmission Date: 20050107
  Serious: No
  Sender: FDA-Public Use
  Company Number: US-GLAXOSMITHKLINE-A0501020A

PATIENT
  Age: 58 Year
  Sex: Female

DRUGS (4)
  1. VENTOLIN [Suspect]
     Indication: BRONCHOSPASM
     Dosage: 18G THREE TIMES PER DAY
     Route: 055
     Dates: start: 20040101
  2. AZMACORT [Concomitant]
  3. VOLMAX [Concomitant]
  4. ATROVENT [Concomitant]

REACTIONS (2)
  - BRONCHOSPASM [None]
  - DYSPNOEA [None]
